FAERS Safety Report 19202669 (Version 3)
Quarter: 2021Q3

REPORT INFORMATION
  Report Type: Report from Study
  Country: IT (occurrence: IT)
  Receive Date: 20210430
  Receipt Date: 20210726
  Transmission Date: 20211014
  Serious: Yes (Hospitalization)
  Sender: FDA-Public Use
  Company Number: IT-ROCHE-2817567

PATIENT
  Age: 59 Year
  Sex: Female
  Weight: 47 kg

DRUGS (9)
  1. DELTACORTENE [Concomitant]
     Active Substance: PREDNISONE
     Indication: PYREXIA
     Route: 048
     Dates: start: 20210224, end: 20210301
  2. IBUPROFEN. [Concomitant]
     Active Substance: IBUPROFEN
     Indication: ARTHRALGIA
     Route: 048
     Dates: start: 20210410
  3. ZITROMAX [Concomitant]
     Active Substance: AZITHROMYCIN
     Indication: PYREXIA
     Route: 048
     Dates: start: 20210220, end: 20210222
  4. ENOXAPARIN SODIUM. [Concomitant]
     Active Substance: ENOXAPARIN SODIUM
     Route: 058
     Dates: start: 20210422
  5. PLACEBO [Suspect]
     Active Substance: UNSPECIFIED INGREDIENT
     Indication: NON-SMALL CELL LUNG CANCER
     Dosage: Q3W ON DAY 1 OF EACH 21?DAY CYCLE
     Route: 042
  6. ATEZOLIZUMAB. [Suspect]
     Active Substance: ATEZOLIZUMAB
     Indication: NON-SMALL CELL LUNG CANCER
     Dosage: ON 14/APR/2021, RECEIVED MOST RECENT DOSE 1200 MG PRIOR TO EVENT ONSET.
     Route: 042
     Dates: start: 20210208
  7. MACLADIN [Concomitant]
     Active Substance: CLARITHROMYCIN
     Indication: PYREXIA
     Route: 048
     Dates: start: 20210224, end: 20210301
  8. BISOPROLOL [Concomitant]
     Active Substance: BISOPROLOL
     Indication: SINUS TACHYCARDIA
     Route: 048
     Dates: start: 2017, end: 20210425
  9. ENOXAPARIN SODIUM. [Concomitant]
     Active Substance: ENOXAPARIN SODIUM
     Indication: PULMONARY EMBOLISM
     Route: 058
     Dates: start: 20210421, end: 20210421

REACTIONS (1)
  - Pericardial effusion [Recovered/Resolved]

NARRATIVE: CASE EVENT DATE: 20210421
